FAERS Safety Report 7302040 (Version 2)
Quarter: 2014Q2

REPORT INFORMATION
  Report Type: Spontaneous
  Country: US (occurrence: None)
  Receive Date: 20100212
  Receipt Date: 20140425
  Transmission Date: 20141212
  Serious: Yes (Other)
  Sender: FDA-Public Use
  Company Number: 2010S1000761

PATIENT
  Sex: Female

DRUGS (7)
  1. FLEET PHOSPHO-SODA ORAL SALINE LAXATIVE, GINGER-LEMON FLAVOR (ORAL SOLUTION) [Suspect]
     Indication: COLONOSCOPY
     Dosage: PO
     Route: 048
     Dates: start: 20000509, end: 20000510
  2. DIOVAN (VALSARTAN) [Concomitant]
  3. FOLTX (FOLIC ACID, CYANOCOBALMIN) [Concomitant]
  4. ADVAIR (FLUTICASONE PROPIONATE, SALMETEROL XINAFOATE) [Concomitant]
  5. ASPIRIN (ACETYLSALICYLIC ACID) [Concomitant]
  6. CELEBREX (CELECOXIB) [Concomitant]
  7. ACTONEL (RISEDRONATE SODIUM) [Concomitant]

REACTIONS (2)
  - Nephropathy [None]
  - Blood creatinine increased [None]
